FAERS Safety Report 6837144-0 (Version None)
Quarter: 2010Q3

REPORT INFORMATION
  Report Type: 
  Country: None (occurrence: None)
  Receive Date: 20100713
  Receipt Date: 20070507
  Transmission Date: 20110219
  Serious: No
  Sender: FDA-Public Use
  Company Number: US-PFIZER INC-2007037579

PATIENT
  Sex: Female
  Weight: 81.65 kg

DRUGS (5)
  1. CHANTIX [Suspect]
     Indication: SMOKING CESSATION THERAPY
     Dates: start: 20070504
  2. PROZAC [Concomitant]
  3. SEROQUEL [Concomitant]
     Indication: SLEEP DISORDER
  4. DEPAKOTE [Concomitant]
     Indication: AFFECTIVE DISORDER
  5. KLONOPIN [Concomitant]
     Indication: ANXIETY

REACTIONS (1)
  - ANXIETY [None]
